FAERS Safety Report 10427992 (Version 1)
Quarter: 2014Q3

REPORT INFORMATION
  Report Type: Spontaneous
  Country: US (occurrence: US)
  Receive Date: 20140903
  Receipt Date: 20140903
  Transmission Date: 20150326
  Serious: Yes (Life-Threatening, Hospitalization, Other)
  Sender: FDA-Public Use
  Company Number: US-ACTAVIS-2014-18917

PATIENT
  Age: 17 Month
  Sex: Male

DRUGS (1)
  1. GLIPIZIDE (WATSON LABORATORIES) [Suspect]
     Active Substance: GLIPIZIDE
     Indication: ACCIDENTAL EXPOSURE TO PRODUCT BY CHILD
     Dosage: UNK
     Route: 048

REACTIONS (9)
  - Blood insulin increased [Recovered/Resolved]
  - Accidental exposure to product by child [Recovered/Resolved]
  - Convulsion [Recovered/Resolved]
  - Hypothermia [Unknown]
  - Hypoglycaemia [Recovered/Resolved]
  - Brain oedema [Recovered/Resolved]
  - Tachycardia [Recovered/Resolved]
  - Agitation [Recovered/Resolved]
  - Coma [Recovered/Resolved]
